FAERS Safety Report 9221830 (Version 6)
Quarter: 2013Q3

REPORT INFORMATION
  Report Type: Spontaneous
  Country: DE (occurrence: None)
  Receive Date: 20130408
  Receipt Date: 20130916
  Transmission Date: 20140515
  Serious: Yes (Life-Threatening, Hospitalization)
  Sender: FDA-Public Use
  Company Number: SYM-2013-02365

PATIENT
  Age: 73 Year
  Sex: Male

DRUGS (7)
  1. 5-FU [Suspect]
     Indication: COLORECTAL CANCER METASTATIC
     Route: 041
     Dates: start: 20130116, end: 20130116
  2. AFLIBERCEPT [Suspect]
     Indication: COLORECTAL CANCER METASTATIC
     Route: 041
     Dates: start: 20130116, end: 20130116
  3. IRINOTECAN [Suspect]
     Indication: COLORECTAL CANCER METASTATIC
     Route: 041
     Dates: start: 20130116, end: 20130116
  4. LEUCOVORIN (FOLINIC ACID) (SOLUTION FOR INFUSION) (FOLINIC ACID) [Suspect]
     Indication: COLORECTAL CANCER METASTATIC
     Route: 041
     Dates: start: 20130116, end: 20130116
  5. BETA BLOCKING AGENTS (BETA BLOCKING AGENTS) [Concomitant]
  6. SEROTONIN ANTAGONISTS (SEROTONIN ANTAGONISTS) [Concomitant]
  7. CORTICOSTEROD NOS (CORTRICOSTEROID NOS) [Concomitant]

REACTIONS (9)
  - Diarrhoea haemorrhagic [None]
  - Diarrhoea [None]
  - Deep vein thrombosis [None]
  - Rectal haemorrhage [None]
  - Anastomotic leak [None]
  - Urinary retention [None]
  - Abdominal pain [None]
  - Gastrointestinal necrosis [None]
  - Haemorrhoids [None]
